FAERS Safety Report 13535958 (Version 1)
Quarter: 2017Q2

REPORT INFORMATION
  Report Type: Spontaneous
  Country: US (occurrence: US)
  Receive Date: 20170511
  Receipt Date: 20170511
  Transmission Date: 20170830
  Serious: No
  Sender: FDA-Public Use
  Company Number: US-PFIZER INC-2017200084

PATIENT
  Sex: Male

DRUGS (1)
  1. XANAX [Suspect]
     Active Substance: ALPRAZOLAM
     Dosage: UNK

REACTIONS (6)
  - Thinking abnormal [Unknown]
  - Loss of personal independence in daily activities [Unknown]
  - Headache [Unknown]
  - Drug dose omission [Unknown]
  - Nausea [Unknown]
  - Malaise [Unknown]
